FAERS Safety Report 6619428-4 (Version None)
Quarter: 2010Q1

REPORT INFORMATION
  Report Type: 
  Country: None (occurrence: None)
  Receive Date: 20100217
  Receipt Date: 20100129
  Transmission Date: 20100710
  Serious: Yes (Other)
  Sender: FDA-Public Use
  Company Number: 1000011718

PATIENT
  Age: 28 Year
  Sex: Female

DRUGS (5)
  1. ESCITALOPRAM [Suspect]
     Indication: POSTPARTUM DEPRESSION
     Dosage: ORAL, 20 MG (20 MG, 1 IN 1 D), ORAL
     Route: 048
     Dates: start: 20090913, end: 20091001
  2. ESCITALOPRAM [Suspect]
     Indication: POSTPARTUM DEPRESSION
     Dosage: ORAL, 20 MG (20 MG, 1 IN 1 D), ORAL
     Route: 048
     Dates: start: 20091001
  3. WELLBUTRIN XL [Suspect]
  4. PRENASONE (CORTICOSTEROID NOS) [Concomitant]
  5. ORTHO TRI-CYCLEN [Concomitant]

REACTIONS (8)
  - AGITATION [None]
  - ANGER [None]
  - ANXIETY [None]
  - FATIGUE [None]
  - FEELINGS OF WORTHLESSNESS [None]
  - MOOD ALTERED [None]
  - OBSESSIVE THOUGHTS [None]
  - POOR QUALITY SLEEP [None]
